FAERS Safety Report 24095841 (Version 1)
Quarter: 2024Q3

REPORT INFORMATION
  Report Type: Spontaneous
  Country: US (occurrence: None)
  Receive Date: 20240715
  Receipt Date: 20240715
  Transmission Date: 20241017
  Serious: Yes (Hospitalization)
  Sender: Public
  Company Number: None

PATIENT
  Sex: Male

DRUGS (3)
  1. OPSUMIT [Suspect]
     Active Substance: MACITENTAN
  2. TADALAFIL [Concomitant]
  3. TYVASODPI TITRAT KIT POW [Concomitant]

REACTIONS (2)
  - Lung neoplasm malignant [None]
  - Pneumonitis [None]
